FAERS Safety Report 12646809 (Version 2)
Quarter: 2016Q4

REPORT INFORMATION
  Report Type: Spontaneous
  Country: US (occurrence: US)
  Receive Date: 20160812
  Receipt Date: 20161124
  Transmission Date: 20170207
  Serious: Yes (Other)
  Sender: FDA-Public Use
  Company Number: US-TEVA-684372ACC

PATIENT
  Sex: Female
  Weight: 81.72 kg

DRUGS (3)
  1. VITAMIN D3 [Concomitant]
     Active Substance: CHOLECALCIFEROL
  2. VITAMIN B12 [Concomitant]
     Active Substance: CYANOCOBALAMIN
  3. PARAGARD T 380A [Suspect]
     Active Substance: COPPER
     Indication: CONTRACEPTION
     Dates: end: 20160802

REACTIONS (2)
  - Exposure during pregnancy [Unknown]
  - Pregnancy on contraceptive [Unknown]
